FAERS Safety Report 10348359 (Version 3)
Quarter: 2014Q4

REPORT INFORMATION
  Report Type: Spontaneous
  Country: JP (occurrence: None)
  Receive Date: 20140725
  Receipt Date: 20141229
  Transmission Date: 20150528
  Serious: Yes (Death, Life-Threatening)
  Sender: FDA-Public Use
  Company Number: JP-RRD-14-00089

PATIENT
  Age: 0 Year
  Sex: Male
  Weight: .5 kg

DRUGS (1)
  1. INDACIN (INDOMETACIN) (INDOMETACIN) [Suspect]
     Active Substance: INDOMETHACIN
     Indication: PATENT DUCTUS ARTERIOSUS
     Dates: start: 20140708

REACTIONS (1)
  - Neonatal anuria [None]

NARRATIVE: CASE EVENT DATE: 20140708
